FAERS Safety Report 7911592-X (Version None)
Quarter: 2011Q4

REPORT INFORMATION
  Report Type: 
  Country: None (occurrence: None)
  Receive Date: 20111109
  Receipt Date: 20111025
  Transmission Date: 20120403
  Serious: Yes (Other)
  Sender: FDA-Public Use
  Company Number: 2011P1009092

PATIENT
  Age: 90 Year
  Sex: Female
  Weight: 61.6892 kg

DRUGS (5)
  1. UNSPECIFIED STATIN [Concomitant]
  2. ATENOLOL [Concomitant]
  3. NORVASC [Concomitant]
  4. POTASSIUM [Concomitant]
  5. FLUOCINONIDE [Suspect]
     Indication: ALOPECIA
     Dosage: ;QD;TOP
     Route: 061
     Dates: start: 20110801, end: 20110901

REACTIONS (3)
  - HALLUCINATION, AUDITORY [None]
  - INSOMNIA [None]
  - OFF LABEL USE [None]
